FAERS Safety Report 8276644 (Version 2)
Quarter: 2013Q4

REPORT INFORMATION
  Report Type: Spontaneous
  Country: US (occurrence: US)
  Receive Date: 20111206
  Receipt Date: 20131231
  Transmission Date: 20140711
  Serious: Yes (Hospitalization)
  Sender: FDA-Public Use
  Company Number: US-GLAXOSMITHKLINE-A0931075A

PATIENT
  Age: 64 Year
  Sex: Male

DRUGS (1)
  1. AVANDIA [Suspect]
     Indication: DIABETES MELLITUS
     Route: 048
     Dates: start: 200409, end: 200706

REACTIONS (4)
  - Cardiovascular disorder [Unknown]
  - Myocardial infarction [Unknown]
  - Coronary artery disease [Unknown]
  - Cerebrovascular accident [Unknown]
